FAERS Safety Report 6243365-0 (Version None)
Quarter: 2009Q2

REPORT INFORMATION
  Report Type: 
  Country: None (occurrence: None)
  Receive Date: 20090622
  Receipt Date: 20090609
  Transmission Date: 20091009
  Serious: Yes (Disabling)
  Sender: FDA-Public Use
  Company Number: 2009-02303

PATIENT
  Age: 49 Year
  Sex: Male

DRUGS (10)
  1. VELCADE [Suspect]
     Indication: MULTIPLE MYELOMA
     Dosage: 1.3 MG/M2, INTRAVENOUS
     Route: 042
     Dates: start: 20090110
  2. ACYCLOVIR [Concomitant]
  3. ALLOPURINOL [Concomitant]
  4. ENOXAPARIN SODIUM [Concomitant]
  5. CODEINE SUL TAB [Concomitant]
  6. DEXAMETHASONE [Concomitant]
  7. OMEPRAZOLE [Concomitant]
  8. ONDANSETRON HCL [Concomitant]
  9. PAMIDRONATE DISODIUM [Concomitant]
  10. ACETAMINOPHEN [Concomitant]

REACTIONS (3)
  - CSF PROTEIN INCREASED [None]
  - PARAESTHESIA [None]
  - VITH NERVE PARALYSIS [None]
